FAERS Safety Report 11103867 (Version 2)
Quarter: 2015Q2

REPORT INFORMATION
  Report Type: Spontaneous
  Country: GB (occurrence: None)
  Receive Date: 20150507
  Receipt Date: 20150518
  Transmission Date: 20150821
  Serious: Yes (Disabling)
  Sender: FDA-Public Use
  Company Number: FK201502073

PATIENT
  Age: 46 Year
  Sex: Male

DRUGS (2)
  1. CISPLATIN. [Suspect]
     Active Substance: CISPLATIN
     Indication: LARYNGEAL CANCER
     Dates: start: 201503, end: 201504
  2. ZAPONEX (CLOZAPINE) (CLOZAPINE) [Suspect]
     Active Substance: CLOZAPINE
     Indication: PRODUCT USED FOR UNKNOWN INDICATION
     Dosage: 300 MG, 1 IN 1 D, ORAL
     Route: 048
     Dates: start: 20150418, end: 20150420

REACTIONS (11)
  - Metastases to lymph nodes [None]
  - White blood cell count increased [None]
  - Leukopenia [None]
  - Product use issue [None]
  - Neutropenia [None]
  - Neutrophil count increased [None]
  - Platelet count decreased [None]
  - White blood cell count decreased [None]
  - Neutrophil count decreased [None]
  - Drug effect incomplete [None]
  - Laryngeal cancer [None]
